FAERS Safety Report 20690056 (Version 1)
Quarter: 2022Q2

REPORT INFORMATION
  Report Type: Spontaneous
  Country: JP (occurrence: JP)
  Receive Date: 20220408
  Receipt Date: 20220408
  Transmission Date: 20220720
  Serious: Yes (Hospitalization, Other)
  Sender: FDA-Public Use
  Company Number: JP-SA-SAC20220407001717

PATIENT
  Age: 74 Year
  Sex: Male

DRUGS (4)
  1. OXALIPLATIN [Suspect]
     Active Substance: OXALIPLATIN
     Indication: Gastric cancer
     Dosage: UNK
     Route: 065
  2. TEGAFUR [Concomitant]
     Active Substance: TEGAFUR
  3. GIMERACIL [Concomitant]
     Active Substance: GIMERACIL
  4. OTERACIL POTASSIUM [Concomitant]
     Active Substance: OTERACIL POTASSIUM

REACTIONS (2)
  - Biliary colic [Unknown]
  - Cholecystitis [Unknown]
